FAERS Safety Report 5512307-5 (Version None)
Quarter: 2007Q4

REPORT INFORMATION
  Report Type: 
  Country: None (occurrence: None)
  Receive Date: 20071112
  Receipt Date: 20071009
  Transmission Date: 20080405
  Serious: No
  Sender: FDA-Public Use
  Company Number: A0686661A

PATIENT
  Age: 64 Year
  Sex: Female

DRUGS (5)
  1. VERAMYST [Suspect]
     Dosage: 1SPR SINGLE DOSE
     Route: 045
     Dates: start: 20071005, end: 20071005
  2. ADEECON [Concomitant]
  3. DIAZEPAM [Concomitant]
  4. ESTROGEN [Concomitant]
  5. SYNTHROID [Concomitant]

REACTIONS (3)
  - EYE IRRITATION [None]
  - EYE PAIN [None]
  - VISION BLURRED [None]
